FAERS Safety Report 21361665 (Version 2)
Quarter: 2022Q4

REPORT INFORMATION
  Report Type: Spontaneous
  Country: JP (occurrence: JP)
  Receive Date: 20220921
  Receipt Date: 20221025
  Transmission Date: 20230113
  Serious: Yes (Hospitalization, Other)
  Sender: FDA-Public Use
  Company Number: JP-BRISTOL-MYERS SQUIBB COMPANY-2022-045528

PATIENT
  Age: 55 Year
  Sex: Male
  Weight: 73 kg

DRUGS (8)
  1. IPILIMUMAB [Suspect]
     Active Substance: IPILIMUMAB
     Indication: Non-small cell lung cancer
     Route: 041
  2. OPDIVO [Suspect]
     Active Substance: NIVOLUMAB
     Indication: Non-small cell lung cancer
     Dosage: 240G
     Route: 041
  3. OPDIVO [Suspect]
     Active Substance: NIVOLUMAB
     Dosage: 480G
     Route: 041
  4. DECADRON [Concomitant]
     Active Substance: DEXAMETHASONE
     Indication: Non-small cell lung cancer
     Dosage: 1 MG ONCE
     Route: 048
  5. SULFAMETHOXAZOLE\TRIMETHOPRIM [Concomitant]
     Active Substance: SULFAMETHOXAZOLE\TRIMETHOPRIM
     Indication: Non-small cell lung cancer
     Dosage: 1 TABLET ONCE
     Route: 048
  6. ISOSORBIDE [Concomitant]
     Active Substance: ISOSORBIDE
     Indication: Non-small cell lung cancer
     Dosage: 30 ML, 3 TIMES
     Route: 048
  7. EDOXABAN TOSYLATE [Concomitant]
     Active Substance: EDOXABAN TOSYLATE
     Indication: Deep vein thrombosis
     Dosage: 60G, ONCE
     Route: 048
  8. VONOPRAZAN FUMARATE [Concomitant]
     Active Substance: VONOPRAZAN FUMARATE
     Indication: Prophylaxis
     Dosage: 10G, ONCE
     Route: 048

REACTIONS (3)
  - Liver disorder [Recovering/Resolving]
  - Rash [Recovered/Resolved]
  - Immune thrombocytopenia [Recovering/Resolving]

NARRATIVE: CASE EVENT DATE: 20220307
